FAERS Safety Report 7473294-6 (Version None)
Quarter: 2011Q1

REPORT INFORMATION
  Report Type: 
  Country: None (occurrence: None)
  Receive Date: 20110302
  Receipt Date: 20100727
  Transmission Date: 20110831
  Serious: Yes (Death, Life-Threatening, Hospitalization, Other)
  Sender: FDA-Public Use
  Company Number: 163-21880-10070083

PATIENT
  Age: 75 Year
  Sex: Female
  Weight: 27.2158 kg

DRUGS (13)
  1. COREG [Concomitant]
  2. IMMUNE GLOBULIN (HUMAN) [Concomitant]
  3. NEPHROCAPS (NEPHROCAPS) [Concomitant]
  4. PREDNISONE [Concomitant]
  5. EPOGEN [Concomitant]
  6. PRILOSEC [Concomitant]
  7. REVLIMID [Suspect]
     Indication: MULTIPLE MYELOMA
     Dosage: 5 MG, BIW, PO
     Route: 048
     Dates: start: 20070601, end: 20100701
  8. DIOVAN [Concomitant]
  9. GAMMAGARD [Concomitant]
  10. RENAGEL [Concomitant]
  11. RENVELA [Concomitant]
  12. FLAGYL [Concomitant]
  13. VICODIN [Concomitant]

REACTIONS (4)
  - DIVERTICULUM [None]
  - RECTAL HAEMORRHAGE [None]
  - THROMBOCYTOPENIA [None]
  - COLITIS [None]
